FAERS Safety Report 8424339-8 (Version None)
Quarter: 2012Q2

REPORT INFORMATION
  Report Type: 
  Country: None (occurrence: None)
  Receive Date: 20120608
  Receipt Date: 20110714
  Transmission Date: 20120825
  Serious: No
  Sender: FDA-Public Use
  Company Number: US-ASTRAZENECA-2011SE42050

PATIENT
  Sex: Female

DRUGS (2)
  1. VENTALIN [Concomitant]
  2. PULMICORT FLEXHALER [Suspect]
     Dosage: AS NEEDED
     Route: 055

REACTIONS (3)
  - RHINORRHOEA [None]
  - COUGH [None]
  - INCREASED UPPER AIRWAY SECRETION [None]
